FAERS Safety Report 24888885 (Version 1)
Quarter: 2025Q1

REPORT INFORMATION
  Report Type: Spontaneous
  Country: CN (occurrence: CN)
  Receive Date: 20250127
  Receipt Date: 20250127
  Transmission Date: 20250408
  Serious: Yes (Other)
  Sender: TERSERA THERAPEUTICS
  Company Number: CN-ASTRAZENECA-202501CHN020346CN

PATIENT

DRUGS (4)
  1. GOSERELIN [Suspect]
     Active Substance: GOSERELIN
     Indication: Endocrine disorder
     Dosage: 3.6 MILLIGRAM, QMONTH
     Route: 058
     Dates: start: 20241216, end: 20250103
  2. ZOLADEX [Suspect]
     Active Substance: GOSERELIN ACETATE
     Indication: Endocrine disorder
     Route: 065
  3. AROMASIN [Suspect]
     Active Substance: EXEMESTANE
     Indication: Endocrine disorder
     Route: 048
     Dates: start: 20241216, end: 20250103
  4. RIBOCICLIB [Suspect]
     Active Substance: RIBOCICLIB
     Indication: Endocrine disorder
     Route: 048
     Dates: start: 20241216, end: 20250103

REACTIONS (1)
  - Myelosuppression [Unknown]

NARRATIVE: CASE EVENT DATE: 20241228
